FAERS Safety Report 14861419 (Version 1)
Quarter: 2018Q2

REPORT INFORMATION
  Report Type: Spontaneous
  Country: US (occurrence: US)
  Receive Date: 20180423
  Receipt Date: 20180423
  Transmission Date: 20180711
  Serious: Yes (Disabling, Other)
  Sender: FDA-Public Use
  Company Number: None

PATIENT
  Age: 72 Year
  Sex: Male
  Weight: 108 kg

DRUGS (6)
  1. ALKA-SELTZER [Concomitant]
     Active Substance: ANHYDROUS CITRIC ACID\ASPIRIN\SODIUM BICARBONATE
  2. CLARATINE [Concomitant]
  3. VITAMINS [Concomitant]
     Active Substance: VITAMINS
  4. SALINE MIST [Concomitant]
     Active Substance: SODIUM CHLORIDE
  5. MELOTONIN [Concomitant]
  6. DOXAZOSIN [Suspect]
     Active Substance: DOXAZOSIN\DOXAZOSIN MESYLATE
     Indication: MICTURITION URGENCY
     Dates: start: 20180320

REACTIONS (2)
  - Pollakiuria [None]
  - Drug ineffective [None]

NARRATIVE: CASE EVENT DATE: 20180320
